FAERS Safety Report 18023552 (Version 5)
Quarter: 2020Q4

REPORT INFORMATION
  Report Type: Report from Study
  Country: CA (occurrence: CA)
  Receive Date: 20200714
  Receipt Date: 20201002
  Transmission Date: 20210113
  Serious: Yes (Disabling)
  Sender: FDA-Public Use
  Company Number: CA-BAUSCH-BL-2020-013639

PATIENT
  Age: 67 Year
  Sex: Male

DRUGS (3)
  1. EPEX [Concomitant]
     Indication: PRODUCT USED FOR UNKNOWN INDICATION
     Route: 065
  2. SILIQ [Suspect]
     Active Substance: BRODALUMAB
     Dosage: STRENGTH: 210MG/1.5 ML
     Route: 058
     Dates: start: 2020
  3. SILIQ [Suspect]
     Active Substance: BRODALUMAB
     Indication: PSORIASIS
     Dosage: STRENGTH: 210 MG/1.5 ML?WEEK 0,1,2
     Route: 058
     Dates: start: 20191220, end: 202001

REACTIONS (8)
  - Gait inability [Not Recovered/Not Resolved]
  - Pain [Recovered/Resolved]
  - Psoriasis [Not Recovered/Not Resolved]
  - Back pain [Recovered/Resolved]
  - Disease recurrence [Not Recovered/Not Resolved]
  - Arthralgia [Recovered/Resolved]
  - Therapeutic product effect incomplete [Unknown]
  - Injection site pain [Recovered/Resolved]

NARRATIVE: CASE EVENT DATE: 2020
